FAERS Safety Report 17742249 (Version 1)
Quarter: 2020Q2

REPORT INFORMATION
  Report Type: Spontaneous
  Country: US (occurrence: US)
  Receive Date: 20200504
  Receipt Date: 20200504
  Transmission Date: 20200714
  Serious: Yes (Other)
  Sender: FDA-Public Use
  Company Number: US-NOVOPROD-725805

PATIENT
  Age: 62 Year
  Sex: Female

DRUGS (1)
  1. NOVOLOG MIX 70/30 [Suspect]
     Active Substance: INSULIN ASPART
     Indication: DIABETES MELLITUS
     Dosage: 50 UNITS
     Route: 065

REACTIONS (8)
  - Blindness unilateral [Unknown]
  - Cataract [Unknown]
  - Myocardial infarction [Unknown]
  - Wrong technique in product usage process [Unknown]
  - Renal disorder [Unknown]
  - Cardiac disorder [Unknown]
  - Carotid artery occlusion [Unknown]
  - Diabetic retinopathy [Unknown]

NARRATIVE: CASE EVENT DATE: 2011
